FAERS Safety Report 9173171 (Version 1)
Quarter: 2013Q1

REPORT INFORMATION
  Report Type: Spontaneous
  Country: US (occurrence: US)
  Receive Date: 20130320
  Receipt Date: 20130320
  Transmission Date: 20140127
  Serious: No
  Sender: FDA-Public Use
  Company Number: US-JNJFOC-20130304121

PATIENT
  Age: 58 Year
  Sex: Female
  Weight: 77.11 kg

DRUGS (6)
  1. DURAGESIC [Suspect]
     Indication: PAIN
     Route: 062
     Dates: start: 20130302
  2. DILANTIN [Concomitant]
     Indication: CONVULSION
     Route: 048
  3. DEPAKOTE [Concomitant]
     Indication: CONVULSION
     Dosage: 500MG X 2
     Route: 048
  4. FIORICET [Concomitant]
     Indication: PAIN
     Route: 065
  5. TRAZODONE [Concomitant]
     Indication: SLEEP DISORDER
     Route: 048
  6. VISTARIL [Concomitant]
     Indication: SLEEP DISORDER
     Route: 065

REACTIONS (5)
  - Drug dose omission [Not Recovered/Not Resolved]
  - Pain [Not Recovered/Not Resolved]
  - Product quality issue [Unknown]
  - Product quality issue [Unknown]
  - Product quality issue [Unknown]
